FAERS Safety Report 6371260-5 (Version None)
Quarter: 2009Q3

REPORT INFORMATION
  Report Type: 
  Country: None (occurrence: None)
  Receive Date: 20090923
  Receipt Date: 20081016
  Transmission Date: 20100115
  Serious: Yes (Hospitalization, Other)
  Sender: FDA-Public Use
  Company Number: US-ASTRAZENECA-2007UW05075

PATIENT
  Age: 27 Year
  Sex: Female
  Weight: 141.1 kg

DRUGS (11)
  1. SEROQUEL [Suspect]
     Indication: MAJOR DEPRESSION
     Dosage: 50-200 MG DAILY
     Route: 048
     Dates: start: 20060401
  2. SEROQUEL [Suspect]
     Indication: ANXIETY
     Dosage: 50-200 MG DAILY
     Route: 048
     Dates: start: 20060401
  3. CYMBALTA [Concomitant]
     Dosage: 60-90 MG
     Dates: start: 20070301, end: 20080401
  4. TRAZODONE [Concomitant]
     Dosage: 100-200 MG
     Dates: start: 20070426
  5. ALPRAZOLAM [Concomitant]
     Dates: start: 20070101
  6. AMBIEN [Concomitant]
     Dates: start: 20080325
  7. XANAX [Concomitant]
     Dates: start: 20060817, end: 20080901
  8. LAMICTAL [Concomitant]
     Dosage: 100-200 MG
     Dates: start: 20070823, end: 20080601
  9. PROZAC [Concomitant]
     Dates: start: 20060420, end: 20060701
  10. EFFEXOR [Concomitant]
     Dates: start: 20060817, end: 20080201
  11. METABOLIFE [Concomitant]
     Dates: start: 20080101

REACTIONS (6)
  - ASTHMA [None]
  - DIABETES MELLITUS [None]
  - GENITAL DISORDER FEMALE [None]
  - HYPERGLYCAEMIA [None]
  - OBESITY [None]
  - PNEUMONIA [None]
